FAERS Safety Report 16692511 (Version 1)
Quarter: 2019Q4

REPORT INFORMATION
  Report Type: Spontaneous
  Country: US (occurrence: US)
  Receive Date: 20190809
  Receipt Date: 20190809
  Transmission Date: 20200122
  Serious: Yes (Other)
  Sender: FDA-Public Use
  Company Number: None

PATIENT
  Age: 45 Year
  Sex: Female
  Weight: 78.75 kg

DRUGS (1)
  1. COMPAZINE [Suspect]
     Active Substance: PROCHLORPERAZINE MALEATE
     Indication: MIGRAINE

REACTIONS (11)
  - Hyperhidrosis [None]
  - Confusional state [None]
  - Gait disturbance [None]
  - Sleep deficit [None]
  - Insomnia [None]
  - Conversion disorder [None]
  - Anxiety [None]
  - Feeling jittery [None]
  - Dysstasia [None]
  - Autophobia [None]
  - Feeding disorder [None]

NARRATIVE: CASE EVENT DATE: 20190807
